FAERS Safety Report 20503754 (Version 1)
Quarter: 2022Q1

REPORT INFORMATION
  Report Type: Spontaneous
  Country: US (occurrence: None)
  Receive Date: 20220221
  Receipt Date: 20220221
  Transmission Date: 20220423
  Serious: Yes (Other)
  Sender: FDA-Public Use
  Company Number: None

PATIENT
  Age: 86 Year
  Sex: Male
  Weight: 98 kg

DRUGS (1)
  1. DEFINITY [Suspect]
     Active Substance: PERFLUTREN
     Indication: Diagnostic procedure
     Dosage: OTHER FREQUENCY : ONCE;?
     Dates: start: 20220216, end: 20220216

REACTIONS (1)
  - Back pain [None]

NARRATIVE: CASE EVENT DATE: 20220216
